FAERS Safety Report 8992032 (Version 2)
Quarter: 2013Q1

REPORT INFORMATION
  Report Type: Spontaneous
  Country: GB (occurrence: GB)
  Receive Date: 20121231
  Receipt Date: 20130129
  Transmission Date: 20140127
  Serious: Yes (Other)
  Sender: FDA-Public Use
  Company Number: PHFR2012GB006652

PATIENT
  Age: 42 Year
  Sex: Male

DRUGS (10)
  1. CLOZARIL [Suspect]
     Indication: SCHIZOPHRENIA
     Dosage: 550 MG, QD
     Route: 048
     Dates: start: 20040624
  2. INSULIN GLARGINE [Concomitant]
     Dosage: 10 U, QD
  3. ATORVASTATIN [Concomitant]
     Dosage: 40 MG, QD
     Route: 048
  4. RANITIDINE [Concomitant]
     Dosage: 300 MG, QD
     Route: 048
  5. DIVALPROEX SODIUM [Concomitant]
     Dosage: 1500 MG, QD
     Route: 048
  6. METFORMIN [Concomitant]
     Dosage: 3000 MG, QD
     Route: 048
  7. GLICLAZIDE [Concomitant]
     Dosage: 320 MG, QD
     Route: 048
  8. AMISULPRIDE [Concomitant]
     Dosage: 300 MG, QD
     Route: 048
  9. CLONAZEPAM [Concomitant]
     Dosage: 1.5 MG, QD
     Route: 048
  10. CLOMIPRAMINE [Concomitant]
     Dosage: 200 MG, QD
     Route: 048

REACTIONS (2)
  - White blood cell count increased [Recovered/Resolved]
  - Neutrophil count increased [Recovered/Resolved]
